FAERS Safety Report 9855246 (Version 4)
Quarter: 2017Q1

REPORT INFORMATION
  Report Type: Spontaneous
  Country: US (occurrence: US)
  Receive Date: 20140130
  Receipt Date: 20170201
  Transmission Date: 20170429
  Serious: Yes (Life-Threatening, Hospitalization, Other)
  Sender: FDA-Public Use
  Company Number: US-BAYER-2014-013427

PATIENT
  Age: 32 Year
  Sex: Female
  Weight: 80.73 kg

DRUGS (2)
  1. MIRENA [Suspect]
     Active Substance: LEVONORGESTREL
     Indication: CONTRACEPTION
     Dosage: 20 MCG/24HR, CONT
     Route: 015
     Dates: start: 20050107, end: 20120214
  2. IBUPROFEN. [Concomitant]
     Active Substance: IBUPROFEN

REACTIONS (16)
  - Device use issue [None]
  - Dyspareunia [None]
  - Drug ineffective [None]
  - Loss of libido [None]
  - Uterine perforation [None]
  - Depression [None]
  - Injury [None]
  - Anxiety [None]
  - Pain [None]
  - Emotional distress [None]
  - Pregnancy with contraceptive device [None]
  - Abdominal pain lower [None]
  - General physical health deterioration [None]
  - Anhedonia [None]
  - Menorrhagia [None]
  - Scar [None]

NARRATIVE: CASE EVENT DATE: 201201
